FAERS Safety Report 13415759 (Version 1)
Quarter: 2017Q2

REPORT INFORMATION
  Report Type: Spontaneous
  Country: US (occurrence: US)
  Receive Date: 20170407
  Receipt Date: 20170407
  Transmission Date: 20170830
  Serious: No
  Sender: FDA-Public Use
  Company Number: US-TEVA-749389ACC

PATIENT
  Age: 28 Year
  Sex: Female
  Weight: 68.1 kg

DRUGS (1)
  1. TAKE ACTION [Suspect]
     Active Substance: LEVONORGESTREL
     Indication: POST COITAL CONTRACEPTION
     Dates: start: 201702, end: 201702

REACTIONS (2)
  - Menstruation delayed [Not Recovered/Not Resolved]
  - Dysmenorrhoea [Unknown]

NARRATIVE: CASE EVENT DATE: 20170307
